FAERS Safety Report 8815495 (Version 2)
Quarter: 2013Q1

REPORT INFORMATION
  Report Type: Spontaneous
  Country: FR (occurrence: FR)
  Receive Date: 20120928
  Receipt Date: 20130104
  Transmission Date: 20140127
  Serious: Yes (Other)
  Sender: FDA-Public Use
  Company Number: FR-GLAXOSMITHKLINE-B0832176A

PATIENT
  Sex: Female

DRUGS (3)
  1. LAMICTAL [Suspect]
     Indication: EPILEPSY
     Dosage: 400MG PER DAY
     Route: 048
     Dates: start: 2000
  2. KEPPRA [Suspect]
     Indication: EPILEPSY
     Dosage: 1500MG PER DAY
     Route: 048
     Dates: start: 2005
  3. RIVOTRIL [Suspect]
     Indication: EPILEPSY
     Dosage: 2MG PER DAY
     Route: 048
     Dates: start: 1975

REACTIONS (1)
  - Respiratory tract infection [Recovered/Resolved]
